FAERS Safety Report 7780496-8 (Version None)
Quarter: 2011Q3

REPORT INFORMATION
  Report Type: 
  Country: None (occurrence: None)
  Receive Date: 20110927
  Receipt Date: 20110826
  Transmission Date: 20111222
  Serious: No
  Sender: FDA-Public Use
  Company Number: US-GLAXOSMITHKLINE-A0943065A

PATIENT
  Age: 30 Year
  Sex: Female

DRUGS (1)
  1. LAMICTAL XR [Suspect]
     Dosage: 200MG UNKNOWN
     Route: 065

REACTIONS (2)
  - ALOPECIA [None]
  - ILL-DEFINED DISORDER [None]
